FAERS Safety Report 15107372 (Version 20)
Quarter: 2024Q3

REPORT INFORMATION
  Report Type: Report from Study
  Country: CA (occurrence: CA)
  Receive Date: 20180704
  Receipt Date: 20240912
  Transmission Date: 20241016
  Serious: Yes (Hospitalization, Other)
  Sender: TAKEDA
  Company Number: CA-TAKEDA-2018TUS021103

PATIENT
  Sex: Male

DRUGS (16)
  1. VEDOLIZUMAB [Suspect]
     Active Substance: VEDOLIZUMAB
     Indication: Crohn^s disease
     Dosage: 300 MILLIGRAM
     Route: 042
     Dates: start: 20180125
  2. VEDOLIZUMAB [Suspect]
     Active Substance: VEDOLIZUMAB
     Dosage: 300 MILLIGRAM
     Route: 042
  3. VEDOLIZUMAB [Suspect]
     Active Substance: VEDOLIZUMAB
     Dosage: 300 MILLIGRAM
     Route: 042
  4. VEDOLIZUMAB [Suspect]
     Active Substance: VEDOLIZUMAB
     Dosage: 300 MILLIGRAM
     Route: 042
  5. VEDOLIZUMAB [Suspect]
     Active Substance: VEDOLIZUMAB
     Dosage: 300 MILLIGRAM
     Route: 042
  6. VEDOLIZUMAB [Suspect]
     Active Substance: VEDOLIZUMAB
     Dosage: 300 MILLIGRAM
     Route: 042
  7. VEDOLIZUMAB [Suspect]
     Active Substance: VEDOLIZUMAB
     Dosage: 300 MILLIGRAM
     Route: 042
  8. VEDOLIZUMAB [Suspect]
     Active Substance: VEDOLIZUMAB
     Dosage: 300 MILLIGRAM
     Route: 042
  9. VEDOLIZUMAB [Suspect]
     Active Substance: VEDOLIZUMAB
     Dosage: 300 MILLIGRAM
     Route: 042
  10. VEDOLIZUMAB [Suspect]
     Active Substance: VEDOLIZUMAB
     Dosage: 300 MILLIGRAM
     Route: 042
  11. METHOTREXATE [Concomitant]
     Active Substance: METHOTREXATE
     Dosage: 20 MILLIGRAM, 1/WEEK
     Dates: start: 20171205
  12. FLAGYL [Concomitant]
     Active Substance: METRONIDAZOLE\METRONIDAZOLE HYDROCHLORIDE
     Indication: Clostridium difficile infection
     Dosage: UNK
     Dates: start: 20171220
  13. Salofalk [Concomitant]
     Dosage: UNK
  14. PREDNISONE [Concomitant]
     Active Substance: PREDNISONE
     Dosage: UNK
     Route: 048
  15. PLAVIX [Concomitant]
     Active Substance: CLOPIDOGREL BISULFATE
     Dosage: 75 MILLIGRAM, QD
  16. ASPIRIN [Concomitant]
     Active Substance: ASPIRIN
     Dosage: 80 MILLIGRAM

REACTIONS (14)
  - Nephrolithiasis [Not Recovered/Not Resolved]
  - Pericarditis [Not Recovered/Not Resolved]
  - Myocardial infarction [Recovered/Resolved]
  - Postoperative wound infection [Unknown]
  - Crohn^s disease [Unknown]
  - Rectal haemorrhage [Unknown]
  - Pallor [Not Recovered/Not Resolved]
  - Cholelithiasis [Unknown]
  - Asthenia [Not Recovered/Not Resolved]
  - Diarrhoea [Unknown]
  - Drug ineffective [Unknown]
  - Insomnia [Unknown]
  - Chest pain [Recovered/Resolved]
  - Nausea [Not Recovered/Not Resolved]

NARRATIVE: CASE EVENT DATE: 20180101
